FAERS Safety Report 24691618 (Version 1)
Quarter: 2024Q4

REPORT INFORMATION
  Report Type: Spontaneous
  Country: US (occurrence: None)
  Receive Date: 20241203
  Receipt Date: 20241203
  Transmission Date: 20250114
  Serious: Yes (Life-Threatening, Hospitalization)
  Sender: Public
  Company Number: None

PATIENT
  Age: 76 Year
  Sex: Male

DRUGS (1)
  1. APIXABAN [Suspect]
     Active Substance: APIXABAN
     Indication: Atrial fibrillation
     Dates: start: 20220322, end: 20240922

REACTIONS (9)
  - Haemorrhage [None]
  - Nausea [None]
  - Vomiting [None]
  - Muscular weakness [None]
  - Visual field defect [None]
  - Facial paralysis [None]
  - Sensory disturbance [None]
  - Subdural haematoma [None]
  - Loss of personal independence in daily activities [None]

NARRATIVE: CASE EVENT DATE: 20240922
